FAERS Safety Report 17725398 (Version 2)
Quarter: 2020Q2

REPORT INFORMATION
  Report Type: Spontaneous
  Country: CN (occurrence: CN)
  Receive Date: 20200429
  Receipt Date: 20200501
  Transmission Date: 20200714
  Serious: Yes (Death)
  Sender: FDA-Public Use
  Company Number: CN-ASTRAZENECA-2020SE56064

PATIENT
  Age: 66 Year
  Sex: Male

DRUGS (1)
  1. SYMBICORT [Suspect]
     Active Substance: BUDESONIDE\FORMOTEROL FUMARATE DIHYDRATE
     Indication: ASTHMA
     Dosage: 160UG/9UG, TWO TIMES A DAY (ONCE IN THE MORNING AND ONCE IN THE EVENING, WHEN IT WAS SERIOUS FOR ...
     Route: 055

REACTIONS (1)
  - Haemorrhagic fever [Fatal]
